FAERS Safety Report 6719431-X (Version None)
Quarter: 2010Q2

REPORT INFORMATION
  Report Type: 
  Country: None (occurrence: None)
  Receive Date: 20100510
  Receipt Date: 20100510
  Transmission Date: 20101027
  Serious: Yes (Other)
  Sender: FDA-Public Use
  Company Number: None

PATIENT
  Age: 32 Year
  Sex: Female
  Weight: 85.5 kg

DRUGS (1)
  1. TORADOL [Suspect]
     Indication: COSTOCHONDRITIS
     Dosage: 30 MG XL IV --042
     Dates: start: 20100427

REACTIONS (3)
  - BURNING SENSATION [None]
  - CONVULSION [None]
  - DYSPNOEA [None]
